FAERS Safety Report 8605856-4 (Version None)
Quarter: 2012Q3

REPORT INFORMATION
  Report Type: 
  Country: None (occurrence: None)
  Receive Date: 20120820
  Receipt Date: 20120815
  Transmission Date: 20120928
  Serious: Yes (Death)
  Sender: FDA-Public Use
  Company Number: US-GLAXOSMITHKLINE-A0990051A

PATIENT
  Sex: Male

DRUGS (1)
  1. TYKERB [Suspect]
     Indication: OESOPHAGEAL CARCINOMA
     Dosage: 250MG PER DAY
     Route: 065

REACTIONS (1)
  - DEATH [None]
